FAERS Safety Report 6254744-X (Version None)
Quarter: 2009Q3

REPORT INFORMATION
  Report Type: 
  Country: None (occurrence: None)
  Receive Date: 20090702
  Receipt Date: 20090622
  Transmission Date: 20100115
  Serious: Yes (Other)
  Sender: FDA-Public Use
  Company Number: US-ROCHE-640059

PATIENT
  Sex: Male

DRUGS (1)
  1. CELLCEPT [Suspect]
     Route: 065
     Dates: start: 20060101

REACTIONS (1)
  - THROAT CANCER [None]
